FAERS Safety Report 24677546 (Version 1)
Quarter: 2024Q4

REPORT INFORMATION
  Report Type: Spontaneous
  Country: US (occurrence: US)
  Receive Date: 20241129
  Receipt Date: 20241129
  Transmission Date: 20250115
  Serious: No
  Sender: UPSHER SMITH LABORATORIES
  Company Number: US-UPSHER-SMITH LABORATORIES, LLC-2024USL00202

PATIENT
  Sex: Female

DRUGS (3)
  1. MIDODRINE HYDROCHLORIDE [Suspect]
     Active Substance: MIDODRINE HYDROCHLORIDE
     Indication: Postural orthostatic tachycardia syndrome
     Dosage: 5 MG, 3X/DAY (FIRST BOTTLE)
     Route: 048
     Dates: start: 20240119
  2. MIDODRINE HYDROCHLORIDE [Suspect]
     Active Substance: MIDODRINE HYDROCHLORIDE
     Dosage: 5 MG, 3X/DAY (REFILL; SECOND BOTTLE)
     Route: 048
     Dates: start: 202402, end: 202402
  3. MIDODRINE HYDROCHLORIDE [Suspect]
     Active Substance: MIDODRINE HYDROCHLORIDE
     Dosage: 5 MG, 3X/DAY (FIRST BOTTLE)
     Route: 048
     Dates: start: 202402

REACTIONS (1)
  - Drug ineffective [Recovered/Resolved]

NARRATIVE: CASE EVENT DATE: 20240201
